FAERS Safety Report 8348285-3 (Version None)
Quarter: 2012Q2

REPORT INFORMATION
  Report Type: 
  Country: None (occurrence: None)
  Receive Date: 20120509
  Receipt Date: 20120501
  Transmission Date: 20120825
  Serious: Yes (Other)
  Sender: FDA-Public Use
  Company Number: US-B.I. PHARMACEUTICALS,INC./RIDGEFIELD-2012-BP-10316YA

PATIENT
  Sex: Female

DRUGS (2)
  1. FESOTERODINE [Suspect]
     Indication: HYPERTONIC BLADDER
     Route: 048
  2. TAMSULOSIN HCL [Suspect]

REACTIONS (3)
  - DRUG INEFFECTIVE [None]
  - CONSTIPATION [None]
  - DYSURIA [None]
